FAERS Safety Report 5208096-4 (Version None)
Quarter: 2006Q4

REPORT INFORMATION
  Report Type: 
  Country: None (occurrence: None)
  Receive Date: 20061027
  Receipt Date: 20060306
  Transmission Date: 20070319
  Serious: Yes (Hospitalization, Other)
  Sender: FDA-Public Use
  Company Number: AMAN20060001

PATIENT
  Sex: Male

DRUGS (1)
  1. AMANTADINE HCL [Suspect]
     Dosage: 200 MG DAILY PO
     Route: 048

REACTIONS (2)
  - MEDICATION ERROR [None]
  - PULMONARY OEDEMA [None]
